FAERS Safety Report 4802241-8 (Version None)
Quarter: 2005Q4

REPORT INFORMATION
  Report Type: 
  Country: None (occurrence: None)
  Receive Date: 20051012
  Receipt Date: 20050927
  Transmission Date: 20060501
  Serious: Yes (Death, Hospitalization)
  Sender: FDA-Public Use
  Company Number: T05-USA-02375-01

PATIENT
  Age: 81 Year
  Sex: Female

DRUGS (7)
  1. LEXAPRO [Suspect]
     Indication: AGITATION
     Dosage: 10 MG QD PO
     Route: 048
     Dates: start: 20050822, end: 20050922
  2. LEXAPRO [Suspect]
     Indication: DEMENTIA ALZHEIMER'S TYPE
     Dosage: 10 MG QD PO
     Route: 048
     Dates: start: 20050822, end: 20050922
  3. ARICEPT [Concomitant]
  4. ASPIRIN [Concomitant]
  5. MULTI-VITAMINS [Concomitant]
  6. ATIVAN [Concomitant]
  7. WARFARIN [Concomitant]

REACTIONS (5)
  - DEHYDRATION [None]
  - DEPRESSED LEVEL OF CONSCIOUSNESS [None]
  - FLUID INTAKE REDUCED [None]
  - RESPIRATORY RATE INCREASED [None]
  - URINARY TRACT INFECTION [None]
